FAERS Safety Report 12382026 (Version 1)
Quarter: 2016Q2

REPORT INFORMATION
  Report Type: Spontaneous
  Country: US (occurrence: US)
  Receive Date: 20160518
  Receipt Date: 20160518
  Transmission Date: 20160815
  Serious: No
  Sender: FDA-Public Use
  Company Number: US-ASTRAZENECA-2016SE53002

PATIENT
  Sex: Female

DRUGS (1)
  1. RHINOCORT [Suspect]
     Active Substance: BUDESONIDE
     Indication: PRODUCT USE ISSUE
     Route: 065

REACTIONS (3)
  - Nasal discomfort [Unknown]
  - Nasal dryness [Unknown]
  - Drug ineffective for unapproved indication [Unknown]
